FAERS Safety Report 24802041 (Version 2)
Quarter: 2025Q1

REPORT INFORMATION
  Report Type: Report from Study
  Country: CA (occurrence: CA)
  Receive Date: 20250102
  Receipt Date: 20250225
  Transmission Date: 20250409
  Serious: Yes (Other)
  Sender: ABBVIE
  Company Number: CA-ABBVIE-6068509

PATIENT
  Age: 41 Year
  Sex: Male
  Weight: 49 kg

DRUGS (1)
  1. SKYRIZI [Suspect]
     Active Substance: RISANKIZUMAB-RZAA
     Indication: Psoriasis
     Route: 058
     Dates: start: 20240528

REACTIONS (10)
  - Adenocarcinoma pancreas [Unknown]
  - Device issue [Unknown]
  - Malaise [Unknown]
  - Adverse drug reaction [Unknown]
  - Hepatic mass [Unknown]
  - Chromaturia [Unknown]
  - Ocular icterus [Unknown]
  - Decreased appetite [Unknown]
  - Abdominal pain [Unknown]
  - Nausea [Unknown]

NARRATIVE: CASE EVENT DATE: 20240101
